FAERS Safety Report 5788553-2 (Version None)
Quarter: 2008Q2

REPORT INFORMATION
  Report Type: 
  Country: None (occurrence: None)
  Receive Date: 20080626
  Receipt Date: 20080616
  Transmission Date: 20081010
  Serious: Yes (Hospitalization)
  Sender: FDA-Public Use
  Company Number: US-JNJFOC-20060405602

PATIENT
  Sex: Female
  Weight: 55.79 kg

DRUGS (4)
  1. ORTHO EVRA [Suspect]
     Route: 062
  2. ORTHO EVRA [Suspect]
     Indication: DRUG USE FOR UNKNOWN INDICATION
     Route: 062
  3. TRIPHASIL-21 [Suspect]
     Indication: DRUG USE FOR UNKNOWN INDICATION
  4. TOPAMAX [Concomitant]
     Indication: MIGRAINE

REACTIONS (3)
  - NEPHROLITHIASIS [None]
  - RENAL ABSCESS [None]
  - THROMBOSIS [None]
